FAERS Safety Report 15350649 (Version 1)
Quarter: 2018Q4

REPORT INFORMATION
  Report Type: Spontaneous
  Country: FR (occurrence: FR)
  Receive Date: 20180905
  Receipt Date: 20180905
  Transmission Date: 20190204
  Serious: Yes (Hospitalization)
  Sender: FDA-Public Use
  Company Number: FR-SUN PHARMACEUTICAL INDUSTRIES LTD-2018RR-183491

PATIENT
  Age: 86 Year
  Sex: Female
  Weight: 40 kg

DRUGS (2)
  1. METFORMIN [Suspect]
     Active Substance: METFORMIN HYDROCHLORIDE
     Indication: DIABETES MELLITUS
     Dosage: 1000 MG, DAILY
     Route: 048
     Dates: start: 20160101, end: 20171026
  2. CHLORHYDRATE DE MIANSERINE [Suspect]
     Active Substance: MIANSERIN HYDROCHLORIDE
     Indication: DEPRESSION
     Dosage: 30 MG, DAILY
     Route: 047
     Dates: start: 20130101, end: 20171020

REACTIONS (4)
  - General physical health deterioration [Recovering/Resolving]
  - Pancytopenia [Recovered/Resolved]
  - Vitamin B12 deficiency [Recovering/Resolving]
  - Folate deficiency [Recovering/Resolving]

NARRATIVE: CASE EVENT DATE: 20171020
